FAERS Safety Report 10229571 (Version 2)
Quarter: 2014Q2

REPORT INFORMATION
  Report Type: Spontaneous
  Country: JP (occurrence: None)
  Receive Date: 20140609
  Receipt Date: 20140611
  Transmission Date: 20141212
  Serious: Yes (Hospitalization, Other)
  Sender: FDA-Public Use
  Company Number: ABR_01675_2014

PATIENT
  Age: 56 Year
  Sex: Female

DRUGS (2)
  1. GLIADEL (GLIADEL-CARMUSTINE) 7.7 MG (NOT SPECIFIED) [Suspect]
     Indication: MALIGNANT GLIOMA
     Dosage: INTRACEREBRAL
  2. TEMODAL [Concomitant]

REACTIONS (4)
  - Cerebral cyst [None]
  - Procedural site reaction [None]
  - Convulsion [None]
  - Inflammation [None]
